FAERS Safety Report 9548336 (Version 1)
Quarter: 2013Q2

REPORT INFORMATION
  Report Type: Spontaneous
  Country: US (occurrence: None)
  Receive Date: 20130627
  Receipt Date: 20130627
  Transmission Date: 20140414
  Serious: No
  Sender: FDA-Public Use
  Company Number: 1000043680

PATIENT
  Age: 60 Year
  Sex: Female

DRUGS (10)
  1. LINZESS (LINACLOTIDE) (145 MICROGRAM CAPSULES) [Suspect]
     Indication: CONSTIPATION
     Route: 048
     Dates: start: 20130304, end: 20130315
  2. NEXIUM (ESOMEPRAZOLE) (ESOMEPRAZOLE) [Concomitant]
  3. LITHIUM (LITHIUM) (LITHIUM) [Concomitant]
  4. ZOLOFT (SERTRALINE HYDROCHLORIDE) (SERTRALINE HYDROCHLORIDE) [Concomitant]
  5. LAMICTAL (LAMOTRIGINE ) (LAMOTRIGINE) [Concomitant]
  6. ASPIRIN (ACETYLSALICYLIC ACID) (ACETYLSALICYLIC ACID) [Concomitant]
  7. OMEGA-3 (OMEGA-3) (OMEGA-3) [Concomitant]
  8. CALCIUM (CALCIUM) (CALCIUM) [Concomitant]
  9. VITAMIN  B 12 (VITAMIN B NOS) (VITAMIN B NOS) [Concomitant]
  10. FOLIC ACID (FOLIC ACID) (FOLIC ACID) [Concomitant]

REACTIONS (1)
  - Drug ineffective [None]
